FAERS Safety Report 8123538-2 (Version None)
Quarter: 2012Q1

REPORT INFORMATION
  Report Type: 
  Country: None (occurrence: None)
  Receive Date: 20120208
  Receipt Date: 20120202
  Transmission Date: 20120608
  Serious: Yes (Other)
  Sender: FDA-Public Use
  Company Number: PHHY2011CA88804

PATIENT
  Sex: Female

DRUGS (23)
  1. SYNTHROID [Concomitant]
     Dosage: 0.162 MG, 1 TAB Q DAILY
     Dates: start: 20110908
  2. IMURAN [Concomitant]
     Dosage: 100 MG, 2 TABS BID
     Dates: start: 20110908
  3. XALATAN [Concomitant]
     Dosage: 1 DRP, EACH EYE QHS
     Dates: start: 20110908
  4. ADVAIR DISKUS 100/50 [Concomitant]
     Dosage: 500 MG, 1 PUFF BID
     Dates: start: 20110908
  5. ZOLEDRONOC ACID [Suspect]
     Dosage: UNK UKN, UNK
     Route: 042
     Dates: start: 20101216
  6. LYRICA [Concomitant]
     Dosage: 150 MG, 1 TAB TID
     Dates: start: 20110908
  7. QVAR 40 [Concomitant]
     Dosage: 100 MCH, 1 PUFF Q DALIY
     Dates: start: 20110908
  8. MESTINON [Concomitant]
     Dosage: 60 MG, 2 TABS TID
     Dates: start: 20110908
  9. SENOKOT                                 /UNK/ [Concomitant]
     Dosage: 1 TAB QHS
     Dates: start: 20110908
  10. ALBUTEROL SULFATE AUTOHALER [Concomitant]
     Dosage: 100 UG, 2 PUFFS QID PRN
     Dates: start: 20110908
  11. ASPIRIVA [Concomitant]
     Dosage: 18 UG, 1 PUFF Q DAILY
     Dates: start: 20110908
  12. MIRAPEX [Concomitant]
     Dosage: 0.25 MG, 3 TABS TID
     Dates: start: 20110908
  13. CYMBALTA [Concomitant]
     Dosage: 60 MG, 1 ATB QHS
     Dates: start: 20110908
  14. TRAZODONE HCL [Concomitant]
     Dosage: 50 MG, 1/2 TAB QHS PM
     Dates: start: 20110908
  15. ZOLEDRONOC ACID [Suspect]
     Indication: OSTEOPOROSIS
     Dosage: UNK UKN, UNK
     Route: 042
     Dates: start: 20081016
  16. PREVACID [Concomitant]
     Dosage: 30 MG, 1 TAB BID
     Dates: start: 20110908
  17. BACLOFEN [Concomitant]
     Dosage: 5 MG, 1 TAB BID
     Dates: start: 20110908
  18. COLACE [Concomitant]
     Dosage: 100 MG, 1 TAB BID
     Dates: start: 20110908
  19. ACETAMINOPHEN [Concomitant]
     Dosage: 500 MG, 2 TABS QID
     Dates: start: 20110908
  20. VITAMIN D [Concomitant]
     Dosage: 1000 IU, 1 TAB Q DAILY
     Dates: start: 20110908
  21. ZOLEDRONOC ACID [Suspect]
     Dosage: UNK UKN, UNK
     Route: 042
     Dates: start: 20091217
  22. COVERYL [Concomitant]
     Dosage: 8 MG, 1 TAB DAILY
     Dates: start: 20110908
  23. BUTIRAN [Concomitant]
     Dosage: 10 MCH/HR PATCH WEEKLY
     Dates: start: 20110908

REACTIONS (5)
  - NEURALGIA [None]
  - ABASIA [None]
  - INTERVERTEBRAL DISC COMPRESSION [None]
  - FALL [None]
  - SYNOVIAL CYST [None]
